FAERS Safety Report 15044509 (Version 1)
Quarter: 2018Q2

REPORT INFORMATION
  Report Type: Spontaneous
  Country: DE (occurrence: DE)
  Receive Date: 20180621
  Receipt Date: 20180621
  Transmission Date: 20180711
  Serious: Yes (Other)
  Sender: FDA-Public Use
  Company Number: DE-TERSERA THERAPEUTICS, LLC-2049784

PATIENT
  Age: 52 Year
  Sex: Female

DRUGS (4)
  1. ZOLADEX [Suspect]
     Active Substance: GOSERELIN ACETATE
     Indication: BREAST CANCER METASTATIC
     Route: 058
     Dates: start: 201612
  2. LETROZOLE. [Suspect]
     Active Substance: LETROZOLE
     Route: 065
     Dates: start: 201612
  3. DENOSUMAB [Suspect]
     Active Substance: DENOSUMAB
     Route: 065
     Dates: start: 201612
  4. PALBOCICLIB [Suspect]
     Active Substance: PALBOCICLIB
     Route: 065
     Dates: start: 201701

REACTIONS (5)
  - Neutrophil count decreased [Unknown]
  - Nausea [Unknown]
  - Tongue disorder [Unknown]
  - Paraesthesia oral [Unknown]
  - Leukopenia [Unknown]
